FAERS Safety Report 15112718 (Version 1)
Quarter: 2018Q3

REPORT INFORMATION
  Report Type: Spontaneous
  Country: US (occurrence: US)
  Receive Date: 20180705
  Receipt Date: 20180705
  Transmission Date: 20181010
  Serious: No
  Sender: FDA-Public Use
  Company Number: US-VIFOR (INTERNATIONAL) INC.-VIT-2018-06681

PATIENT
  Sex: Male

DRUGS (11)
  1. CLARITIN [Concomitant]
     Active Substance: LORATADINE
  2. FUROSEMIDE. [Concomitant]
     Active Substance: FUROSEMIDE
  3. AMLODIPINE BESILATE [Concomitant]
     Active Substance: AMLODIPINE BESYLATE
  4. VELTASSA [Suspect]
     Active Substance: PATIROMER
     Indication: HYPERKALAEMIA
     Route: 048
     Dates: start: 20170413
  5. LISINOPRIL. [Concomitant]
     Active Substance: LISINOPRIL
  6. COLECALCIFEROL [Concomitant]
     Active Substance: CHOLECALCIFEROL
  7. COLCRYS [Concomitant]
     Active Substance: COLCHICINE
  8. ALLOPURINOL. [Concomitant]
     Active Substance: ALLOPURINOL
  9. SIMVASTATIN. [Concomitant]
     Active Substance: SIMVASTATIN
  10. LABETALOL HYDROCHLORIDE. [Concomitant]
     Active Substance: LABETALOL HYDROCHLORIDE
  11. VELTASSA [Suspect]
     Active Substance: PATIROMER
     Route: 048

REACTIONS (2)
  - Constipation [Unknown]
  - Off label use [Unknown]
